FAERS Safety Report 12929220 (Version 1)
Quarter: 2016Q4

REPORT INFORMATION
  Report Type: Spontaneous
  Country: US (occurrence: US)
  Receive Date: 20161110
  Receipt Date: 20161110
  Transmission Date: 20170207
  Serious: No
  Sender: FDA-Public Use
  Company Number: US-PFIZER INC-2016521177

PATIENT
  Age: 66 Year
  Sex: Female

DRUGS (1)
  1. ESTRADIOL. [Suspect]
     Active Substance: ESTRADIOL
     Dosage: 1 MG, UNK
     Dates: start: 201609

REACTIONS (3)
  - Pruritus [Unknown]
  - Chest discomfort [Unknown]
  - Dyspnoea [Unknown]
